FAERS Safety Report 5833540-9 (Version None)
Quarter: 2008Q3

REPORT INFORMATION
  Report Type: 
  Country: None (occurrence: None)
  Receive Date: 20080804
  Receipt Date: 20080804
  Transmission Date: 20090109
  Serious: Yes (Other)
  Sender: FDA-Public Use
  Company Number: None

PATIENT
  Age: 51 Year
  Sex: Female
  Weight: 65.7716 kg

DRUGS (1)
  1. PRILOSEC [Suspect]
     Indication: GASTROOESOPHAGEAL REFLUX DISEASE
     Dosage: 20 MG QD PO
     Route: 048
     Dates: start: 20080725, end: 20080801

REACTIONS (7)
  - ARRHYTHMIA [None]
  - BRADYCARDIA [None]
  - CHEST DISCOMFORT [None]
  - EXTRASYSTOLES [None]
  - FEAR [None]
  - INSOMNIA [None]
  - PALPITATIONS [None]
